FAERS Safety Report 13687192 (Version 1)
Quarter: 2017Q2

REPORT INFORMATION
  Report Type: Spontaneous
  Country: US (occurrence: US)
  Receive Date: 20170623
  Receipt Date: 20170623
  Transmission Date: 20170830
  Serious: No
  Sender: FDA-Public Use
  Company Number: US-AQUA PHARMACEUTICALS-2016AQU000128

PATIENT
  Age: 6 Year
  Sex: Female
  Weight: 20.41 kg

DRUGS (2)
  1. CORDRAN [Suspect]
     Active Substance: FLURANDRENOLIDE
     Indication: PITYRIASIS ALBA
     Dosage: UNK, BID
     Route: 061
     Dates: start: 20160511
  2. CORDRAN [Suspect]
     Active Substance: FLURANDRENOLIDE
     Indication: VITILIGO

REACTIONS (4)
  - Hyperaesthesia [Recovered/Resolved]
  - Skin burning sensation [Recovered/Resolved]
  - Pruritus [Recovered/Resolved]
  - Pain of skin [Recovered/Resolved]

NARRATIVE: CASE EVENT DATE: 20160513
